FAERS Safety Report 4724725-3 (Version None)
Quarter: 2005Q3

REPORT INFORMATION
  Report Type: 
  Country: None (occurrence: None)
  Receive Date: 20050720
  Receipt Date: 20050720
  Transmission Date: 20060218
  Serious: No
  Sender: FDA-Public Use
  Company Number: None

PATIENT
  Sex: Male
  Weight: 107 kg

DRUGS (18)
  1. CYMBALTA [Suspect]
     Indication: DIABETIC NEUROPATHY
     Dosage: 60MG   QDAY   ORAL
     Route: 048
     Dates: start: 20050525, end: 20050629
  2. ATENOLOL [Concomitant]
  3. ZESTRIL [Concomitant]
  4. ROBAXIN [Concomitant]
  5. M.V.I. [Concomitant]
  6. ELAVIL [Concomitant]
  7. COUMADIN [Concomitant]
  8. NPH INSULIN [Concomitant]
  9. PREVACID [Concomitant]
  10. ALBUTEROL [Concomitant]
  11. HYDROCHLOROTHIAZIDE [Concomitant]
  12. ZOCOR [Concomitant]
  13. MINOCIN [Concomitant]
  14. GLIPIZIDE [Concomitant]
  15. GUAIFENESIN [Concomitant]
  16. MICALCIN [Concomitant]
  17. OXYCODONE HCL [Concomitant]
  18. METHADONE [Concomitant]

REACTIONS (4)
  - ANXIETY [None]
  - IRRITABILITY [None]
  - TREMOR [None]
  - VISION BLURRED [None]
